FAERS Safety Report 8204668-3 (Version None)
Quarter: 2012Q1

REPORT INFORMATION
  Report Type: 
  Country: None (occurrence: None)
  Receive Date: 20120313
  Receipt Date: 20120311
  Transmission Date: 20120608
  Serious: Yes (Death)
  Sender: FDA-Public Use
  Company Number: IN-PFIZER INC-2012064224

PATIENT

DRUGS (1)
  1. TORISEL [Suspect]
     Indication: OVARIAN CANCER METASTATIC
     Dosage: 25 MG, WEEKLY
     Route: 042

REACTIONS (1)
  - DEATH [None]
